FAERS Safety Report 18350134 (Version 1)
Quarter: 2020Q4

REPORT INFORMATION
  Report Type: Spontaneous
  Country: BR (occurrence: BR)
  Receive Date: 20201006
  Receipt Date: 20201006
  Transmission Date: 20210114
  Serious: Yes (Other)
  Sender: FDA-Public Use
  Company Number: BR-PFIZER INC-2020380923

PATIENT
  Sex: Female

DRUGS (1)
  1. DALACIN C [Suspect]
     Active Substance: CLINDAMYCIN
     Dosage: UNK

REACTIONS (5)
  - Pruritus [Unknown]
  - Paralysis [Unknown]
  - Hypoaesthesia [Unknown]
  - Drug hypersensitivity [Unknown]
  - Erythema [Unknown]
